FAERS Safety Report 8366359-8 (Version None)
Quarter: 2012Q2

REPORT INFORMATION
  Report Type: 
  Country: None (occurrence: None)
  Receive Date: 20120517
  Receipt Date: 20120511
  Transmission Date: 20120825
  Serious: Yes (Hospitalization)
  Sender: FDA-Public Use
  Company Number: US-BAYER-2012-047344

PATIENT
  Age: 43 Year
  Sex: Female

DRUGS (10)
  1. SINGULAIR [Concomitant]
     Dosage: 10 MG, DAILY
     Route: 048
     Dates: start: 19990104, end: 20100112
  2. ALLEGRA [Concomitant]
     Dosage: 180 MG, DAILY
     Route: 048
  3. AZITHROMYCIN [Concomitant]
     Dosage: 250 MG, UNK
     Route: 048
     Dates: start: 20080630
  4. PREDNISONE TAB [Concomitant]
     Dosage: 10 MG, UNK
     Route: 048
     Dates: start: 20080630
  5. MAXALT [Concomitant]
     Dosage: 10 MG, UNK
     Route: 048
     Dates: start: 20080726
  6. YAZ [Suspect]
     Indication: MENORRHAGIA
  7. ADVAIR DISKUS 100/50 [Concomitant]
     Dosage: 500 MCG BID
     Dates: start: 20040827, end: 20091208
  8. ALBUTEROL [Concomitant]
     Indication: ASTHMA
     Dosage: TWO PUFFS, PRN
     Route: 045
     Dates: start: 20080829
  9. XOPENEX [Concomitant]
     Dosage: UNK
  10. YASMIN [Suspect]

REACTIONS (1)
  - PULMONARY EMBOLISM [None]
